FAERS Safety Report 11486629 (Version 14)
Quarter: 2019Q3

REPORT INFORMATION
  Report Type: Spontaneous
  Country: US (occurrence: US)
  Receive Date: 20150910
  Receipt Date: 20190911
  Transmission Date: 20191004
  Serious: No
  Sender: FDA-Public Use
  Company Number: US-PFIZER INC-2015282107

PATIENT
  Age: 61 Year
  Sex: Male
  Weight: 77 kg

DRUGS (21)
  1. PROZAC [Concomitant]
     Active Substance: FLUOXETINE HYDROCHLORIDE
     Dosage: 20 MG, DAILY
  2. LISINOPRIL. [Concomitant]
     Active Substance: LISINOPRIL
     Dosage: 2.5 MG, DAILY
  3. GLUCOTROL [Concomitant]
     Active Substance: GLIPIZIDE
     Dosage: 10 MG, TWICE DAILY (WITH BREAKFAST AND DINNER)
     Route: 048
     Dates: start: 20160506
  4. NORCO [Concomitant]
     Active Substance: ACETAMINOPHEN\HYDROCODONE BITARTRATE
     Dosage: 1 DF, (AS NEEDED EVERY 4 HOURS)
  5. GLUCOPHAGE [Concomitant]
     Active Substance: METFORMIN HYDROCHLORIDE
     Dosage: 1000 MG, TWICE DAILY (WITH BREAKFAST AND DINNER)
     Route: 048
     Dates: start: 20160506
  6. CORGARD [Concomitant]
     Active Substance: NADOLOL
     Dosage: 20 MG, ONCE DAILY (BREAKFAST)
     Route: 048
     Dates: start: 20160506
  7. LYRICA [Suspect]
     Active Substance: PREGABALIN
     Dosage: 200 MG, DAILY
     Route: 048
  8. CELEXA [Concomitant]
     Active Substance: CITALOPRAM HYDROBROMIDE
     Dosage: 10 MG, DAILY
     Route: 048
     Dates: start: 20160506
  9. NORCO [Concomitant]
     Active Substance: ACETAMINOPHEN\HYDROCODONE BITARTRATE
     Dosage: 1 DF, AS NEEDED (EVERY 6 HOURS)
     Route: 048
     Dates: start: 20160506
  10. LYRICA [Suspect]
     Active Substance: PREGABALIN
     Dosage: UNK
  11. KLONOPIN [Concomitant]
     Active Substance: CLONAZEPAM
     Dosage: UNK, 1X/DAY (ONE-HALF TO 1 DF, AT BEDTIME)
     Route: 048
     Dates: start: 20160506
  12. NADOLOL. [Concomitant]
     Active Substance: NADOLOL
     Dosage: 20 MG, DAILY
  13. LYRICA [Suspect]
     Active Substance: PREGABALIN
     Indication: NEUROPATHY PERIPHERAL
     Dosage: 1 DF, THRICE DAILY
     Route: 048
     Dates: start: 20160526
  14. LYRICA [Suspect]
     Active Substance: PREGABALIN
     Dosage: 200 MG, THRICE DAILY
     Route: 048
     Dates: start: 20190129
  15. NPH INSULIN [Concomitant]
     Active Substance: INSULIN BEEF
     Dosage: UNK
  16. LYRICA [Suspect]
     Active Substance: PREGABALIN
     Indication: POLYNEUROPATHY
     Dosage: 200 MG, THRICE DAILY
     Route: 048
     Dates: start: 20170718
  17. ZESTRIL [Concomitant]
     Active Substance: LISINOPRIL
     Dosage: 2.5 MG, DAILY
     Route: 048
     Dates: start: 20160506
  18. LYRICA [Suspect]
     Active Substance: PREGABALIN
     Indication: DIABETIC NEUROPATHY
     Dosage: 200 MG, THRICE DAILY
     Route: 048
     Dates: start: 2012, end: 20150818
  19. KLONOPIN [Concomitant]
     Active Substance: CLONAZEPAM
     Dosage: 1 MG, AS NEEDED (AT BEDTIME)
  20. PRINIVIL [Concomitant]
     Active Substance: LISINOPRIL
     Dosage: 2.5 MG, DAILY
     Route: 048
     Dates: start: 20160506
  21. CARAFATE [Concomitant]
     Active Substance: SUCRALFATE
     Dosage: 1 G, THRICE DAILY (TAKEN ON AN EMPTY STOMACH)
     Route: 048
     Dates: start: 20150828

REACTIONS (13)
  - Therapeutic product effect incomplete [Unknown]
  - Intentional product use issue [Unknown]
  - Asthenia [Not Recovered/Not Resolved]
  - Dizziness [Not Recovered/Not Resolved]
  - Weight fluctuation [Unknown]
  - Decreased appetite [Unknown]
  - Malaise [Unknown]
  - Night sweats [Unknown]
  - Insomnia [Unknown]
  - Anxiety [Unknown]
  - Withdrawal syndrome [Not Recovered/Not Resolved]
  - Diarrhoea [Not Recovered/Not Resolved]
  - Pain [Not Recovered/Not Resolved]

NARRATIVE: CASE EVENT DATE: 20150819
